FAERS Safety Report 10676491 (Version 1)
Quarter: 2014Q4

REPORT INFORMATION
  Report Type: Spontaneous
  Country: JP (occurrence: JP)
  Receive Date: 20141226
  Receipt Date: 20141226
  Transmission Date: 20150529
  Serious: Yes (Other)
  Sender: FDA-Public Use
  Company Number: JP-CIPLA LTD.-2014JP02935

PATIENT

DRUGS (11)
  1. DIPHENHYDRAMINE [Concomitant]
     Active Substance: DIPHENHYDRAMINE
     Dosage: 50 MG OF EACH
  2. PACLITAXEL. [Suspect]
     Active Substance: PACLITAXEL
     Indication: TESTICULAR GERM CELL TUMOUR MIXED
     Dosage: 200 MG/M2 ON DAY 1 EVERY 4 WEEKS
  3. NEDAPLATIN [Suspect]
     Active Substance: NEDAPLATIN
     Indication: TESTICULAR GERM CELL TUMOUR MIXED
     Dosage: 100 MG/M2 GIVEN OVER 2 H ON DAY 2 EVERY 4 WEEKS
  4. MESNA. [Concomitant]
     Active Substance: MESNA
     Dosage: 400 MG EVERY 4 H THEREAFTER FOR A TOTAL OF THREE DOSES PER DAY
     Route: 042
  5. RANITIDINE [Concomitant]
     Active Substance: RANITIDINE\RANITIDINE HYDROCHLORIDE
     Route: 042
  6. DEXAMETHASONE. [Concomitant]
     Active Substance: DEXAMETHASONE
     Dosage: 6 MG
  7. BLEOMYCIN [Suspect]
     Active Substance: BLEOMYCIN SULFATE
     Indication: TESTICULAR GERM CELL TUMOUR MIXED
  8. IFOSFAMIDE. [Suspect]
     Active Substance: IFOSFAMIDE
     Indication: TESTICULAR GERM CELL TUMOUR MIXED
     Dosage: 1.2 G/M2 EVERY 4 WEEKS
  9. IRINOTECAN [Suspect]
     Active Substance: IRINOTECAN
     Indication: TESTICULAR GERM CELL TUMOUR MIXED
     Dosage: UNK
  10. ETOPOSIDE. [Suspect]
     Active Substance: ETOPOSIDE
     Indication: TESTICULAR GERM CELL TUMOUR MIXED
  11. CISPLATIN. [Suspect]
     Active Substance: CISPLATIN
     Indication: TESTICULAR GERM CELL TUMOUR MIXED

REACTIONS (7)
  - Thrombocytopenia [Unknown]
  - Decreased appetite [Unknown]
  - Gastritis [Unknown]
  - Anaemia [Unknown]
  - Nausea [Unknown]
  - Leukopenia [Unknown]
  - Teratoma [Unknown]
